FAERS Safety Report 12067515 (Version 1)
Quarter: 2016Q1

REPORT INFORMATION
  Report Type: Spontaneous
  Country: US (occurrence: US)
  Receive Date: 20160211
  Receipt Date: 20160211
  Transmission Date: 20160526
  Serious: Yes (Hospitalization, Other)
  Sender: FDA-Public Use
  Company Number: US-VIIV HEALTHCARE LIMITED-US2016018249

PATIENT
  Age: 51 Year
  Sex: Male

DRUGS (12)
  1. VESICARE [Concomitant]
     Active Substance: SOLIFENACIN SUCCINATE
  2. GABAPENTIN. [Concomitant]
     Active Substance: GABAPENTIN
  3. METOPROLOL. [Concomitant]
     Active Substance: METOPROLOL
  4. AMLODIPINE [Concomitant]
     Active Substance: AMLODIPINE BESYLATE
  5. SODIUM BICARBONATE. [Concomitant]
     Active Substance: SODIUM BICARBONATE
  6. REYATAZ [Concomitant]
     Active Substance: ATAZANAVIR SULFATE
  7. ACYCLOVIR. [Concomitant]
     Active Substance: ACYCLOVIR
  8. TIVICAY [Suspect]
     Active Substance: DOLUTEGRAVIR SODIUM
     Indication: HIV INFECTION
     Dosage: UNK, BID
     Route: 048
     Dates: start: 2013
  9. KEPPRA [Concomitant]
     Active Substance: LEVETIRACETAM
  10. TESTOSTERONE. [Concomitant]
     Active Substance: TESTOSTERONE
  11. DIFLUCAN [Concomitant]
     Active Substance: FLUCONAZOLE
  12. SULFAMETHOXAZOLE-TRIMETHOPRIM (SMZ) [Concomitant]
     Active Substance: SULFAMETHOXAZOLE\TRIMETHOPRIM

REACTIONS (13)
  - Bladder catheterisation [Not Recovered/Not Resolved]
  - Seizure [Unknown]
  - Meningitis streptococcal [Recovering/Resolving]
  - Foot operation [Recovering/Resolving]
  - Urinary incontinence [Unknown]
  - Peroneal nerve palsy [Recovering/Resolving]
  - Systemic mycosis [Recovering/Resolving]
  - Encephalitis [Unknown]
  - Immunosuppression [Not Recovered/Not Resolved]
  - T-lymphocyte count decreased [Unknown]
  - Fracture treatment [Unknown]
  - Bladder dysfunction [Recovering/Resolving]
  - Ankle fracture [Recovering/Resolving]

NARRATIVE: CASE EVENT DATE: 201309
